APPROVED DRUG PRODUCT: ETOPOSIDE
Active Ingredient: ETOPOSIDE
Strength: 20MG/ML
Dosage Form/Route: INJECTABLE;INJECTION
Application: A204927 | Product #001
Applicant: DASH PHARMACEUTICALS LLC
Approved: Oct 31, 2017 | RLD: No | RS: No | Type: DISCN